FAERS Safety Report 6538828-4 (Version None)
Quarter: 2010Q1

REPORT INFORMATION
  Report Type: 
  Country: None (occurrence: None)
  Receive Date: 20100112
  Receipt Date: 20091229
  Transmission Date: 20100710
  Serious: Yes (Other)
  Sender: FDA-Public Use
  Company Number: 2008AL000960

PATIENT
  Age: 81 Year
  Sex: Female

DRUGS (11)
  1. BETAMETHASONE VALERATE CREAM       (BETAMETHASONE VALERATE CREAM USP, [Suspect]
     Indication: EYE OPERATION
     Dosage: OPH
     Route: 047
     Dates: start: 20070502, end: 20070502
  2. PHENYLEPHRINE HYDROCHLORIDE NASAL [Suspect]
     Indication: CATARACT OPERATION
     Dosage: 1 DF;X1;OPH
     Route: 047
     Dates: start: 20070502, end: 20070502
  3. LIDOCAINE HYDROCHLORIDE ORAL TOPICAL SOLUTION  (VISCOUS) [Suspect]
     Dosage: 2 ML; OPH
     Route: 047
     Dates: start: 20070502, end: 20070502
  4. CYCLOPENTOLATE HCL [Concomitant]
  5. NEOMYCIN [Concomitant]
  6. OCUFEN [Concomitant]
  7. VANCOMYCIN [Concomitant]
  8. HYALURONIC ACID [Concomitant]
  9. EPINEPHRINE [Concomitant]
  10. POVIDONE IODINE [Concomitant]
  11. FLURBIPROFEN [Concomitant]

REACTIONS (2)
  - OFF LABEL USE [None]
  - TOXIC ANTERIOR SEGMENT SYNDROME [None]
